FAERS Safety Report 6987064-6 (Version None)
Quarter: 2010Q3

REPORT INFORMATION
  Report Type: 
  Country: None (occurrence: None)
  Receive Date: 20100916
  Receipt Date: 20100902
  Transmission Date: 20110219
  Serious: Yes (Hospitalization, Disabling)
  Sender: FDA-Public Use
  Company Number: US-ELI_LILLY_AND_COMPANY-US201009001921

PATIENT
  Sex: Female

DRUGS (4)
  1. FORTEO [Suspect]
     Dosage: 20 UG, DAILY (1/D)
  2. CINAMET [Concomitant]
  3. LOVENOX [Concomitant]
  4. ZOLOFT [Concomitant]

REACTIONS (1)
  - HOSPITALISATION [None]
